FAERS Safety Report 4320768-2 (Version None)
Quarter: 2004Q1

REPORT INFORMATION
  Report Type: 
  Country: None (occurrence: None)
  Receive Date: 20040318
  Receipt Date: 20040301
  Transmission Date: 20041129
  Serious: Yes (Life-Threatening)
  Sender: FDA-Public Use
  Company Number: 7528

PATIENT
  Age: 55 Year
  Sex: Male

DRUGS (5)
  1. METHOTREXATE [Suspect]
     Indication: NON-HODGKIN'S LYMPHOMA
     Dosage: 400 MG/M2 PER CYCLE, IV
     Route: 042
  2. BLEOMYCIN [Suspect]
     Indication: NON-HODGKIN'S LYMPHOMA
     Dosage: 10 MG/M2 PER CYCLE, IV
     Route: 042
  3. DOXORUBICIN HCL [Suspect]
     Indication: NON-HODGKIN'S LYMPHOMA
     Dosage: 45 MG/M2 PER CYCLE, IV
     Route: 034
  4. CYCLOPHOSPHAMIDE [Suspect]
     Indication: NON-HODGKIN'S LYMPHOMA
     Dosage: 600 MG/M2 PER CYCLE, IV
     Route: 042
  5. DEXAMETHASONE [Suspect]
     Indication: NON-HODGKIN'S LYMPHOMA
     Dosage: 30 MG/M2 PER CYCLE, IV
     Route: 042

REACTIONS (7)
  - DYSPNOEA [None]
  - GRANULOMA [None]
  - HYPOXIA [None]
  - INFLAMMATION [None]
  - LUNG DISORDER [None]
  - PNEUMONITIS [None]
  - PYREXIA [None]
